FAERS Safety Report 8600992-0 (Version None)
Quarter: 2012Q3

REPORT INFORMATION
  Report Type: 
  Country: None (occurrence: None)
  Receive Date: 20120817
  Receipt Date: 20120809
  Transmission Date: 20120928
  Serious: Yes (Hospitalization)
  Sender: FDA-Public Use
  Company Number: US-BAYER-2012-082640

PATIENT
  Age: 25 Year
  Sex: Female
  Weight: 74.15 kg

DRUGS (6)
  1. PROZAC [Concomitant]
     Indication: DEPRESSION
     Dosage: 20 MG, 20MG [ONE] Q (INTERPRETED AS EVERY) DAY; 40MG, ONE Q DAY
     Route: 048
     Dates: start: 20110112
  2. PROZAC [Concomitant]
     Dosage: 20MG [ONE] Q (INTERPRETED AS EVERY) DAY; 40MG, ONE Q DAY
     Route: 048
     Dates: start: 20110316
  3. METRONIDAZOLE [Concomitant]
     Indication: VAGINITIS BACTERIAL
     Dosage: 500 MG, 1 BID, 7 DAYS
     Route: 048
     Dates: start: 20110112
  4. YAZ [Suspect]
     Dosage: UNK
  5. HYDROCORTISONE ACETATE [Concomitant]
     Indication: HAEMORRHOIDS
     Dosage: 25 MG, UNK
     Route: 054
     Dates: start: 20110112
  6. PROZAC [Concomitant]
     Dosage: 20MG [ONE] Q (INTERPRETED AS EVERY) DAY; 40MG, ONE Q DAY
     Route: 048
     Dates: start: 20110218

REACTIONS (1)
  - PULMONARY EMBOLISM [None]
